FAERS Safety Report 11920153 (Version 1)
Quarter: 2016Q1

REPORT INFORMATION
  Report Type: Spontaneous
  Country: JP (occurrence: JP)
  Receive Date: 20160115
  Receipt Date: 20160115
  Transmission Date: 20160526
  Serious: Yes (Death)
  Sender: FDA-Public Use
  Company Number: JP-OTSUKA-2016_001028

PATIENT
  Age: 95 Year
  Sex: Female

DRUGS (1)
  1. SAMSCA [Suspect]
     Active Substance: TOLVAPTAN
     Indication: CARDIAC FAILURE
     Dosage: 7.5 MG, DAILY DOSE
     Route: 048
     Dates: start: 20151029, end: 20151107

REACTIONS (1)
  - Death [Fatal]

NARRATIVE: CASE EVENT DATE: 20151113
